FAERS Safety Report 5675703-1 (Version None)
Quarter: 2008Q1

REPORT INFORMATION
  Report Type: 
  Country: None (occurrence: None)
  Receive Date: 20080321
  Receipt Date: 20080313
  Transmission Date: 20080703
  Serious: Yes (Other)
  Sender: FDA-Public Use
  Company Number: PHEH2008US01904

PATIENT
  Age: 64 Year
  Sex: Female
  Weight: 75.736 kg

DRUGS (4)
  1. RECLAST [Suspect]
     Indication: OSTEOPOROSIS
     Dosage: 5 MG, ONCE YEARLY
     Dates: start: 20080215
  2. LEVOTHYROXINE SODIUM [Concomitant]
     Dosage: 112 UG, QD
     Route: 048
  3. VITAMINS NOS [Concomitant]
     Dosage: UNK, QD
  4. CALCIUM WITH VITAMIN D [Concomitant]
     Dosage: UNK, BID

REACTIONS (4)
  - ANXIETY [None]
  - COLD SWEAT [None]
  - DIZZINESS [None]
  - SYNCOPE [None]
